FAERS Safety Report 7757694-2 (Version None)
Quarter: 2011Q3

REPORT INFORMATION
  Report Type: 
  Country: None (occurrence: None)
  Receive Date: 20110916
  Receipt Date: 20110914
  Transmission Date: 20111222
  Serious: Yes (Hospitalization, Other)
  Sender: FDA-Public Use
  Company Number: US-MERCK-1108USA01355

PATIENT
  Age: 59 Year
  Sex: Female

DRUGS (2)
  1. FOSAMAX [Suspect]
     Indication: OSTEOPOROSIS
     Route: 048
     Dates: start: 19990101, end: 20100101
  2. FOSAMAX [Suspect]
     Route: 048
     Dates: start: 19981101, end: 19990101

REACTIONS (5)
  - ORAL DISORDER [None]
  - NEOPLASM MALIGNANT [None]
  - BONE DISORDER [None]
  - JAW DISORDER [None]
  - OSTEONECROSIS OF JAW [None]
